FAERS Safety Report 8793737 (Version 1)
Quarter: 2012Q4

REPORT INFORMATION
  Report Type: 
  Country: US (occurrence: US)
  Receive Date: 20120917
  Receipt Date: 20120917
  Transmission Date: 20130627
  Serious: Yes (Other)
  Sender: FDA-Public Use
  Company Number: US-BAYER-2012-096040

PATIENT
  Age: 48 Year
  Sex: Female
  Weight: 102.4 kg

DRUGS (5)
  1. YAZ [Suspect]
     Indication: ENDOMETRIOSIS
  2. VALACICLOVIR [Concomitant]
     Dosage: 500 mg, UNK
     Dates: start: 20110420
  3. MELOXICAM [Concomitant]
     Dosage: 15 mg, UNK
     Dates: start: 20110510
  4. XYZAL [Concomitant]
     Indication: RHINITIS ALLERGIC
     Dosage: 5 mg, UNK
     Dates: start: 20110718
  5. MOBIC [Concomitant]
     Dosage: UNK
     Dates: start: 20110718

REACTIONS (2)
  - Deep vein thrombosis [None]
  - Thrombophlebitis superficial [None]
